FAERS Safety Report 24846013 (Version 2)
Quarter: 2025Q1

REPORT INFORMATION
  Report Type: Report from Study
  Country: US (occurrence: US)
  Receive Date: 20250115
  Receipt Date: 20250303
  Transmission Date: 20250409
  Serious: No
  Sender: KYOWA
  Company Number: US-KYOWAKIRIN-2025KK000467

PATIENT

DRUGS (1)
  1. NOURIANZ [Suspect]
     Active Substance: ISTRADEFYLLINE
     Indication: Parkinson^s disease
     Dosage: 40 MG, QD
     Route: 048
     Dates: start: 202410

REACTIONS (4)
  - Blood pressure abnormal [Unknown]
  - Condition aggravated [Unknown]
  - Aggression [Unknown]
  - Agitation [Unknown]

NARRATIVE: CASE EVENT DATE: 20250101
